FAERS Safety Report 5538373-9 (Version None)
Quarter: 2007Q4

REPORT INFORMATION
  Report Type: 
  Country: None (occurrence: None)
  Receive Date: 20071205
  Receipt Date: 20071121
  Transmission Date: 20080405
  Serious: Yes (Other)
  Sender: FDA-Public Use
  Company Number: E3810-01416-SPO-GB

PATIENT
  Sex: Female

DRUGS (1)
  1. RABEPRAZOLE SODIUM [Suspect]
     Dosage: 10 MG, 1 IN 1 D, ORAL
     Route: 048

REACTIONS (2)
  - DIZZINESS [None]
  - FALL [None]
